FAERS Safety Report 7487833-2 (Version None)
Quarter: 2011Q2

REPORT INFORMATION
  Report Type: 
  Country: None (occurrence: None)
  Receive Date: 20110518
  Receipt Date: 20110510
  Transmission Date: 20111010
  Serious: Yes (Hospitalization, Other)
  Sender: FDA-Public Use
  Company Number: SE-NOVOPROD-321981

PATIENT
  Age: 61 Year
  Sex: Male
  Weight: 101 kg

DRUGS (11)
  1. ATACAND HCT [Concomitant]
     Dosage: 16MG/12.5MG, QD
     Dates: start: 20081216
  2. ENALAPRIL MALEATE [Concomitant]
     Dosage: 5 MG, QD
  3. VICTOZA [Suspect]
     Dosage: 1.2 MG, QD
     Route: 065
     Dates: end: 20101223
  4. METFORMIN HCL [Concomitant]
     Dosage: 3000 MG, QD
     Dates: start: 20030225
  5. CRESTOR [Concomitant]
     Dosage: 20 MG, QD
     Dates: start: 20081216
  6. AMLODIPINE BESYLATE [Concomitant]
     Dosage: 5 MG, QD
     Dates: start: 20081216
  7. NITROMEX [Concomitant]
     Dosage: 0.5 MG, QD
     Dates: start: 20021128
  8. TROMBYL [Concomitant]
     Dosage: 75 MG, QD
     Dates: start: 20020320
  9. VICTOZA [Suspect]
     Indication: TYPE 2 DIABETES MELLITUS
     Dosage: UNK
     Route: 065
     Dates: start: 20101201
  10. MINDIAB [Concomitant]
     Dosage: 5 MG, QD
     Dates: start: 20020320
  11. ALFUZOSIN HYDROCHLORIDE [Concomitant]
     Dosage: 10 MG, QD
     Dates: start: 20061222

REACTIONS (2)
  - NAUSEA [None]
  - GASTRIC ULCER [None]
